FAERS Safety Report 11423015 (Version 1)
Quarter: 2015Q3

REPORT INFORMATION
  Report Type: Spontaneous
  Country: US (occurrence: None)
  Receive Date: 20150826
  Receipt Date: 20150826
  Transmission Date: 20151125
  Serious: Yes (Disabling)
  Sender: FDA-Public Use
  Company Number: None

PATIENT
  Age: 50 Year
  Sex: Female
  Weight: 54.43 kg

DRUGS (1)
  1. LEVOFLOXACIN 500MG ZYDUS PHARMACEUTICALS [Suspect]
     Active Substance: LEVOFLOXACIN
     Indication: EYE INFECTION
     Route: 048
     Dates: start: 20141229, end: 20150107

REACTIONS (1)
  - Laceration [None]

NARRATIVE: CASE EVENT DATE: 20141229
